FAERS Safety Report 6182699-5 (Version None)
Quarter: 2009Q2

REPORT INFORMATION
  Report Type: 
  Country: None (occurrence: None)
  Receive Date: 20090507
  Receipt Date: 20090428
  Transmission Date: 20091009
  Serious: Yes (Hospitalization)
  Sender: FDA-Public Use
  Company Number: B0572153A

PATIENT
  Sex: Female

DRUGS (10)
  1. HYCAMTIN [Suspect]
     Route: 042
     Dates: start: 20081110
  2. CISPLATYL [Suspect]
     Route: 042
     Dates: start: 20081110
  3. DURAGESIC-100 [Suspect]
     Indication: PAIN
     Dosage: 1UNIT TWO TIMES PER WEEK
     Route: 062
     Dates: start: 20081111, end: 20081116
  4. DAFALGAN [Concomitant]
  5. LEXOMIL [Concomitant]
  6. ONDANSETRON [Concomitant]
     Indication: PROPHYLAXIS OF NAUSEA AND VOMITING
     Route: 065
  7. SOLU-MEDROL [Concomitant]
     Indication: PROPHYLAXIS OF NAUSEA AND VOMITING
     Route: 065
  8. EMEND [Concomitant]
     Indication: PROPHYLAXIS OF NAUSEA AND VOMITING
     Route: 065
  9. PRAZEPAM [Concomitant]
  10. GROWTH FACTOR [Concomitant]

REACTIONS (5)
  - ABDOMINAL PAIN UPPER [None]
  - FEBRILE BONE MARROW APLASIA [None]
  - NAUSEA [None]
  - SEPSIS [None]
  - VOMITING [None]
